FAERS Safety Report 11410597 (Version 1)
Quarter: 2015Q3

REPORT INFORMATION
  Report Type: Spontaneous
  Country: US (occurrence: None)
  Receive Date: 20150820
  Receipt Date: 20150820
  Transmission Date: 20151125
  Serious: No
  Sender: FDA-Public Use
  Company Number: None

PATIENT
  Age: 61 Year
  Sex: Male

DRUGS (1)
  1. TACROLIMUS 1MG [Suspect]
     Active Substance: TACROLIMUS
     Indication: ORGAN TRANSPLANT
     Dosage: 2MG AM AND 1 MG EVENING
     Route: 048
     Dates: start: 20150529, end: 20150702

REACTIONS (3)
  - Product quality issue [None]
  - Drug level increased [None]
  - Drug dispensing error [None]

NARRATIVE: CASE EVENT DATE: 20150529
